FAERS Safety Report 7514166-8 (Version None)
Quarter: 2011Q2

REPORT INFORMATION
  Report Type: 
  Country: None (occurrence: None)
  Receive Date: 20110531
  Receipt Date: 20110520
  Transmission Date: 20111010
  Serious: Yes (Hospitalization)
  Sender: FDA-Public Use
  Company Number: US-SANOFI-AVENTIS-2011SA032635

PATIENT
  Age: 59 Year
  Sex: Female

DRUGS (2)
  1. SOLOSTAR [Suspect]
     Dates: start: 20090101, end: 20110501
  2. LANTUS [Suspect]
     Dosage: DOSE:75 UNIT(S)
     Route: 058
     Dates: start: 20090101, end: 20110501

REACTIONS (1)
  - NEPHROLITHIASIS [None]
